FAERS Safety Report 4391532-3 (Version None)
Quarter: 2004Q3

REPORT INFORMATION
  Report Type: 
  Country: None (occurrence: None)
  Receive Date: 20040701
  Receipt Date: 20040617
  Transmission Date: 20050211
  Serious: Yes (Hospitalization)
  Sender: FDA-Public Use
  Company Number: 171265

PATIENT
  Age: 43 Year
  Sex: Female

DRUGS (1)
  1. AVONEX [Suspect]
     Indication: MULTIPLE SCLEROSIS
     Dosage: 30 MCG QW IM
     Route: 030
     Dates: start: 19990101

REACTIONS (17)
  - ABNORMAL DREAMS [None]
  - BLINDNESS UNILATERAL [None]
  - CONTUSION [None]
  - FAECAL INCONTINENCE [None]
  - FATIGUE [None]
  - FIBROMYALGIA [None]
  - HAEMORRHOIDS [None]
  - HEMIPARESIS [None]
  - HOARSENESS [None]
  - INJECTION SITE PAIN [None]
  - LIMB DISCOMFORT [None]
  - MEMORY IMPAIRMENT [None]
  - MULTIPLE SCLEROSIS [None]
  - PAIN [None]
  - SLEEP DISORDER [None]
  - THROMBOSIS [None]
  - URINARY INCONTINENCE [None]
